FAERS Safety Report 14077777 (Version 2)
Quarter: 2017Q4

REPORT INFORMATION
  Report Type: Spontaneous
  Country: US (occurrence: US)
  Receive Date: 20171012
  Receipt Date: 20171107
  Transmission Date: 20180321
  Serious: Yes (Other)
  Sender: FDA-Public Use
  Company Number: US-CELGENEUS-USA-20171002725

PATIENT
  Age: 55 Year
  Sex: Female

DRUGS (4)
  1. REVLIMID [Suspect]
     Active Substance: LENALIDOMIDE
     Indication: MALAISE
     Dosage: 25 MILLIGRAM
     Route: 048
     Dates: start: 200901
  2. REVLIMID [Suspect]
     Active Substance: LENALIDOMIDE
     Indication: PLASMA CELL MYELOMA
     Dosage: 15MG -25MG
     Route: 048
     Dates: start: 200903
  3. REVLIMID [Suspect]
     Active Substance: LENALIDOMIDE
     Dosage: 15 MILLIGRAM
     Route: 048
     Dates: start: 201305
  4. REVLIMID [Suspect]
     Active Substance: LENALIDOMIDE
     Dosage: 15 MILLIGRAM
     Route: 048
     Dates: start: 20170815

REACTIONS (3)
  - Constipation [Not Recovered/Not Resolved]
  - Dry mouth [Not Recovered/Not Resolved]
  - Vision blurred [Unknown]

NARRATIVE: CASE EVENT DATE: 20171004
